FAERS Safety Report 10157971 (Version 4)
Quarter: 2014Q3

REPORT INFORMATION
  Report Type: Spontaneous
  Country: US (occurrence: US)
  Receive Date: 20140507
  Receipt Date: 20140911
  Transmission Date: 20150326
  Serious: Yes (Death, Life-Threatening, Hospitalization, Disabling, Other)
  Sender: FDA-Public Use
  Company Number: US-GLAXOSMITHKLINE-A1072190A

PATIENT
  Age: 63 Year
  Sex: Female
  Weight: 57.7 kg

DRUGS (7)
  1. VOTRIENT [Suspect]
     Active Substance: PAZOPANIB HYDROCHLORIDE
     Indication: BREAST CANCER
     Dosage: 400MG PER DAY
     Route: 048
     Dates: start: 20140407, end: 20140426
  2. EVISTA [Concomitant]
     Active Substance: RALOXIFENE HYDROCHLORIDE
     Dosage: 60MG UNKNOWN
     Route: 048
  3. MULTIVITAMIN [Concomitant]
     Active Substance: VITAMINS
  4. METOPROLOL [Concomitant]
     Active Substance: METOPROLOL
  5. PROZAC [Concomitant]
     Active Substance: FLUOXETINE HYDROCHLORIDE
  6. BIOTIN [Concomitant]
     Active Substance: BIOTIN
     Dosage: 2500MCG UNKNOWN
     Route: 048
     Dates: start: 20121127
  7. LIPITOR [Concomitant]
     Active Substance: ATORVASTATIN CALCIUM
     Indication: PRODUCT USED FOR UNKNOWN INDICATION
     Dosage: 20MG UNKNOWN
     Route: 048

REACTIONS (35)
  - Cardiac failure congestive [Unknown]
  - Acute hepatic failure [Unknown]
  - Tricuspid valve incompetence [Unknown]
  - Liver function test abnormal [Unknown]
  - Cough [Unknown]
  - Oedema peripheral [Unknown]
  - Dyspnoea exertional [Unknown]
  - Nausea [Unknown]
  - Diarrhoea [Unknown]
  - Dehydration [Unknown]
  - Hyperkalaemia [Unknown]
  - Hepatic congestion [Unknown]
  - Death [Fatal]
  - Decreased appetite [Unknown]
  - Renal failure acute [Unknown]
  - Vomiting [Unknown]
  - Pulmonary hypertension [Unknown]
  - Pericardial effusion [Unknown]
  - Chromaturia [Unknown]
  - Pruritus [Unknown]
  - Abdominal distension [Unknown]
  - Colitis [Unknown]
  - Fatigue [Unknown]
  - Dyspnoea [Unknown]
  - Transfusion [Unknown]
  - Cardiomyopathy [Unknown]
  - Pleural effusion [Unknown]
  - Leukocytosis [Unknown]
  - Off label use [Unknown]
  - Abdominal pain [Unknown]
  - Jaundice [Unknown]
  - Asthenia [Unknown]
  - Ejection fraction decreased [Unknown]
  - Fluid overload [Unknown]
  - Metabolic acidosis [Unknown]

NARRATIVE: CASE EVENT DATE: 201404
